FAERS Safety Report 7959036 (Version 6)
Quarter: 2018Q2

REPORT INFORMATION
  Report Type: Report from Study
  Country: JP (occurrence: JP)
  Receive Date: 20110524
  Receipt Date: 20180419
  Transmission Date: 20180711
  Serious: Yes (Death, Hospitalization, Other)
  Sender: FDA-Public Use
  Company Number: PHHY2011JP19840

PATIENT
  Age: 64 Year
  Sex: Male
  Weight: 65 kg

DRUGS (62)
  1. EXJADE [Suspect]
     Active Substance: DEFERASIROX
     Route: 048
     Dates: start: 20100907, end: 20101015
  2. EXJADE [Suspect]
     Active Substance: DEFERASIROX
     Route: 048
     Dates: start: 20110301, end: 20110308
  3. EXJADE [Suspect]
     Active Substance: DEFERASIROX
     Dosage: 125 MG, QOD
     Route: 048
     Dates: start: 20110310, end: 20110620
  4. BAKTAR [Concomitant]
     Active Substance: SULFAMETHOXAZOLE\TRIMETHOPRIM
     Dosage: 80 MG, UNK
     Route: 048
     Dates: end: 20110720
  5. PRIMOBOLAN-DEPOT [Concomitant]
     Active Substance: METHENOLONE ENANTHATE
     Indication: MYELODYSPLASTIC SYNDROME
     Dosage: 10 MG, UNK
     Route: 048
     Dates: start: 20100914
  6. MAGNESIUM OXIDE. [Concomitant]
     Active Substance: MAGNESIUM OXIDE
     Indication: PRODUCT USED FOR UNKNOWN INDICATION
     Dosage: UNK UKN, UNK
     Route: 048
     Dates: start: 20100921, end: 20100927
  7. HYDREA [Concomitant]
     Active Substance: HYDROXYUREA
     Indication: MYELODYSPLASTIC SYNDROME
     Dosage: 1000 MG, UNK
     Route: 048
     Dates: start: 20110624, end: 20110629
  8. ULCERLMIN [Concomitant]
     Active Substance: SUCRALFATE
     Indication: PROPHYLAXIS
     Dosage: 3 G, UNK
     Route: 048
     Dates: start: 20110204
  9. RED CELLS CONCENTRATED [Concomitant]
     Indication: PRODUCT USED FOR UNKNOWN INDICATION
     Dosage: 2 U, EVERY WEEK
     Dates: start: 20110204, end: 20110222
  10. RED CELLS CONCENTRATED [Concomitant]
     Dosage: 2 U, UNK
     Dates: start: 20110607
  11. RED CELLS CONCENTRATED [Concomitant]
     Dosage: 2 U, UNK
     Dates: start: 20110609
  12. RED CELLS CONCENTRATED [Concomitant]
     Dosage: 2 U, UNK
     Dates: start: 20110620
  13. EXJADE [Suspect]
     Active Substance: DEFERASIROX
     Route: 048
     Dates: start: 20100831, end: 20100906
  14. NEORAL [Suspect]
     Active Substance: CYCLOSPORINE
     Indication: MYELODYSPLASTIC SYNDROME
     Route: 048
     Dates: start: 20100803, end: 20100927
  15. MYSLEE [Concomitant]
     Active Substance: ZOLPIDEM TARTRATE
     Indication: PROPHYLAXIS
     Dosage: 10 MG, UNK
     Route: 048
     Dates: end: 20110720
  16. ROHYPNOL [Concomitant]
     Active Substance: FLUNITRAZEPAM
     Indication: INSOMNIA
     Dosage: 2 MG, UNK
     Route: 048
     Dates: start: 20100803
  17. ROHYPNOL [Concomitant]
     Active Substance: FLUNITRAZEPAM
     Indication: PROPHYLAXIS
     Dosage: 2 MG, UNK
     Route: 048
     Dates: end: 20110720
  18. LASTET S [Concomitant]
     Active Substance: ETOPOSIDE
     Indication: MYELODYSPLASTIC SYNDROME
     Dosage: 50 MG, UNK
     Route: 048
     Dates: start: 20110609
  19. LASTET S [Concomitant]
     Active Substance: ETOPOSIDE
     Dosage: 50 MG, UNK
     Route: 048
     Dates: end: 20110720
  20. PURSENNID [Concomitant]
     Active Substance: SENNOSIDES A AND B
     Indication: PROPHYLAXIS
     Dosage: 24 MG, UNK
     Route: 048
     Dates: start: 20110222
  21. AMBISOME [Suspect]
     Active Substance: AMPHOTERICIN B
     Dosage: 140 MG, QD
     Route: 042
     Dates: start: 20110705, end: 20110720
  22. DIFLUCAN [Concomitant]
     Active Substance: FLUCONAZOLE
     Indication: PROPHYLAXIS
     Dosage: 100 MG, UNK
     Route: 048
     Dates: start: 20100803
  23. CIPROXAN [Concomitant]
     Active Substance: CIPROFLOXACIN
     Dosage: 600 MG, UNK
     Route: 048
     Dates: end: 20110721
  24. LOXONIN [Concomitant]
     Active Substance: LOXOPROFEN SODIUM
     Dosage: 180 MG, UNK
     Route: 048
     Dates: end: 20110720
  25. LASTET S [Concomitant]
     Active Substance: ETOPOSIDE
     Indication: NEOPLASM PROGRESSION
     Dosage: 100 MG, UNK
     Route: 048
  26. ULCERLMIN [Concomitant]
     Active Substance: SUCRALFATE
     Dosage: 3 G, UNK
     Route: 048
     Dates: end: 20110425
  27. RED CELLS CONCENTRATED [Concomitant]
     Dosage: 2 U, UNK
     Dates: start: 20110617
  28. AMBISOME [Suspect]
     Active Substance: AMPHOTERICIN B
     Indication: PNEUMONIA
     Dosage: 150 MG, QD
     Route: 042
     Dates: start: 20110301, end: 20110318
  29. AMBISOME [Suspect]
     Active Substance: AMPHOTERICIN B
     Dosage: 140 MG, QD
     Route: 042
     Dates: start: 20110610, end: 20110627
  30. BAKTAR [Concomitant]
     Active Substance: SULFAMETHOXAZOLE\TRIMETHOPRIM
     Indication: PROPHYLAXIS
     Dosage: 80 MG, UNK
     Route: 048
     Dates: start: 20100803
  31. PRIMOBOLAN-DEPOT [Concomitant]
     Active Substance: METHENOLONE ENANTHATE
     Dosage: 10 MG, UNK
     Route: 048
     Dates: end: 20110720
  32. ZITHROMAC [Concomitant]
     Active Substance: AZITHROMYCIN DIHYDRATE
     Indication: PRODUCT USED FOR UNKNOWN INDICATION
     Dosage: 500 MG, UNK
     Route: 048
     Dates: start: 20100810, end: 20100812
  33. RED CELLS CONCENTRATED [Concomitant]
     Dosage: 2 U/ 0.5 WEEKS
     Dates: start: 20110701, end: 20110715
  34. PURSENNID [Concomitant]
     Active Substance: SENNOSIDES A AND B
     Dosage: 12 MG, UNK
     Route: 048
  35. NEORAL [Suspect]
     Active Substance: CYCLOSPORINE
     Route: 048
     Dates: start: 20101015, end: 20101021
  36. CIPROXAN [Concomitant]
     Active Substance: CIPROFLOXACIN
     Indication: PROPHYLAXIS
     Dosage: 600 MG, UNK
     Route: 048
     Dates: start: 20100803
  37. HYDREA [Concomitant]
     Active Substance: HYDROXYUREA
     Indication: NEOPLASM PROGRESSION
  38. LASIX [Concomitant]
     Active Substance: FUROSEMIDE
     Indication: MYELODYSPLASTIC SYNDROME
     Dosage: 10 MG, UNK
     Dates: start: 20110608, end: 20110720
  39. RED CELLS CONCENTRATED [Concomitant]
     Dosage: 2 U, UNK
     Dates: start: 20110524
  40. PL [Concomitant]
     Active Substance: ACETAMINOPHEN\CAFFEINE\PROMETHAZINE\SALICYLAMIDE
     Indication: PRODUCT USED FOR UNKNOWN INDICATION
     Dosage: 3 G, UNK
     Route: 048
     Dates: start: 20100803
  41. EXJADE [Suspect]
     Active Substance: DEFERASIROX
     Route: 048
     Dates: start: 20100810, end: 20100830
  42. TAKEPRON [Concomitant]
     Active Substance: LANSOPRAZOLE
     Dosage: 15 MG, UNK
     Route: 048
     Dates: start: 20110204, end: 20110331
  43. TAKEPRON [Concomitant]
     Active Substance: LANSOPRAZOLE
     Dosage: 15 MG, UNK
     Route: 048
     Dates: end: 20110720
  44. DIFLUCAN [Concomitant]
     Active Substance: FLUCONAZOLE
     Dosage: 100 MG, UNK
     Route: 048
     Dates: end: 20110621
  45. CEFEPIME HYDROCHLORIDE. [Concomitant]
     Active Substance: CEFEPIME HYDROCHLORIDE
     Indication: PRODUCT USED FOR UNKNOWN INDICATION
     Dosage: 1 G, UNK
     Dates: start: 20101005, end: 20101013
  46. ZYLORIC [Concomitant]
     Active Substance: ALLOPURINOL
     Indication: PROPHYLAXIS
     Dosage: 300 MG, UNK
     Route: 048
     Dates: start: 20110607
  47. RED CELLS CONCENTRATED [Concomitant]
     Dosage: 2 U, UNK
     Dates: start: 20110318
  48. PURSENNID [Concomitant]
     Active Substance: SENNOSIDES A AND B
     Dosage: 24 MG, UNK
     Route: 048
     Dates: end: 20110720
  49. EXJADE [Suspect]
     Active Substance: DEFERASIROX
     Indication: IRON OVERLOAD
     Dosage: 500 MG, DAILY
     Route: 048
     Dates: start: 20100907, end: 20101015
  50. EXJADE [Suspect]
     Active Substance: DEFERASIROX
     Indication: MYELODYSPLASTIC SYNDROME
     Dosage: 1500 MG, QD
     Route: 048
     Dates: start: 20100803, end: 20100809
  51. NEORAL [Suspect]
     Active Substance: CYCLOSPORINE
     Route: 048
     Dates: start: 20101009, end: 20101014
  52. TAKEPRON [Concomitant]
     Active Substance: LANSOPRAZOLE
     Indication: PROPHYLAXIS
     Dosage: 15 MG, UNK
     Route: 048
     Dates: start: 20100803
  53. MYSLEE [Concomitant]
     Active Substance: ZOLPIDEM TARTRATE
     Indication: INSOMNIA
     Dosage: 10 MG, UNK
     Route: 048
     Dates: start: 20100803
  54. LOXONIN [Concomitant]
     Active Substance: LOXOPROFEN SODIUM
     Indication: PRODUCT USED FOR UNKNOWN INDICATION
     Dosage: UNK UKN, UNK
     Route: 048
     Dates: start: 20100812
  55. ZYLORIC [Concomitant]
     Active Substance: ALLOPURINOL
     Dosage: 100 MG, UNK
     Route: 048
     Dates: end: 20110720
  56. MILMAG [Concomitant]
     Active Substance: MAGNESIUM HYDROXIDE
     Indication: PROPHYLAXIS
     Dosage: 1050 MG, UNK
     Route: 048
     Dates: start: 20110307, end: 20110425
  57. MUCOSOLVAN [Concomitant]
     Active Substance: AMBROXOL HYDROCHLORIDE
     Indication: PROPHYLAXIS
     Dosage: 45 MG, UNK
     Route: 048
     Dates: start: 20110612, end: 20110720
  58. RED CELLS CONCENTRATED [Concomitant]
     Dosage: 2 U, EVERY 1.5 WEEKS
     Dates: start: 20110304, end: 20110315
  59. RED CELLS CONCENTRATED [Concomitant]
     Dosage: 2 U, UNK
     Dates: start: 20110426
  60. PL [Concomitant]
     Active Substance: ACETAMINOPHEN\CAFFEINE\PROMETHAZINE\SALICYLAMIDE
     Dosage: 3 G, UNK
     Route: 048
     Dates: end: 20101004
  61. RED CELLS CONCENTRATED [Concomitant]
     Dosage: 2 U, UNK
     Dates: start: 20110412
  62. RED CELLS CONCENTRATED [Concomitant]
     Dosage: 2 U, UNK
     Dates: start: 20110627

REACTIONS (9)
  - Pyrexia [Recovering/Resolving]
  - Pyrexia [Recovered/Resolved]
  - White blood cell count increased [Not Recovered/Not Resolved]
  - Pneumonia [Unknown]
  - Renal impairment [Recovering/Resolving]
  - Malignant neoplasm progression [Fatal]
  - Neoplasm progression [Fatal]
  - Upper respiratory tract inflammation [Recovering/Resolving]
  - Platelet count increased [Recovering/Resolving]

NARRATIVE: CASE EVENT DATE: 20100807
